FAERS Safety Report 20627557 (Version 1)
Quarter: 2022Q1

REPORT INFORMATION
  Report Type: Spontaneous
  Country: None (occurrence: US)
  Receive Date: 20220323
  Receipt Date: 20220323
  Transmission Date: 20220423
  Serious: No
  Sender: FDA-Public Use
  Company Number: US-Ascend Therapeutics US, LLC-2127042

PATIENT
  Age: 69 Year
  Sex: Female
  Weight: 56.699 kg

DRUGS (5)
  1. ESTROGEL [Suspect]
     Active Substance: ESTRADIOL
     Indication: Osteoporosis prophylaxis
     Route: 065
  2. ESTROGEL [Suspect]
     Active Substance: ESTRADIOL
  3. ESTROGEL [Suspect]
     Active Substance: ESTRADIOL
     Route: 065
  4. ESTROGEL [Suspect]
     Active Substance: ESTRADIOL
     Route: 061
     Dates: start: 20220101
  5. PROMETRIUM [Suspect]
     Active Substance: PROGESTERONE
     Route: 065

REACTIONS (2)
  - Off label use [None]
  - Product dispensing issue [None]
